FAERS Safety Report 15979164 (Version 3)
Quarter: 2019Q1

REPORT INFORMATION
  Report Type: Spontaneous
  Country: IN (occurrence: IN)
  Receive Date: 20190219
  Receipt Date: 20190327
  Transmission Date: 20190418
  Serious: Yes (Hospitalization, Other)
  Sender: FDA-Public Use
  Company Number: IN-SA-2019SA045398

PATIENT
  Age: 9 Year
  Sex: Female
  Weight: 26 kg

DRUGS (5)
  1. DICLOFENAC [Concomitant]
     Active Substance: DICLOFENAC
     Dosage: 50 MG, BID
     Route: 048
     Dates: start: 201711
  2. DICYCLOMINE HYDROCHLORIDE. [Concomitant]
     Active Substance: DICYCLOMINE HYDROCHLORIDE
     Dosage: 10 MG, BID
     Route: 048
     Dates: start: 201711
  3. CEFOTAXIME SODIUM [Suspect]
     Active Substance: CEFOTAXIME SODIUM
     Dosage: 50 MG/KG/DAY INJECTION
     Route: 042
     Dates: start: 201711
  4. CEFOTAXIME SODIUM [Suspect]
     Active Substance: CEFOTAXIME SODIUM
     Dosage: INJECTION1500 MG
     Route: 042
     Dates: start: 201710
  5. METRONIDAZOLE. [Concomitant]
     Active Substance: METRONIDAZOLE
     Dosage: 500 MG, Q12H (30MG/KG/DAY)
     Route: 042
     Dates: start: 201711

REACTIONS (5)
  - Skin plaque [Recovering/Resolving]
  - Lupus-like syndrome [Recovering/Resolving]
  - Rash papulosquamous [Recovering/Resolving]
  - Erythema [Recovering/Resolving]
  - Rash erythematous [Recovering/Resolving]
